FAERS Safety Report 14301493 (Version 1)
Quarter: 2017Q4

REPORT INFORMATION
  Report Type: Spontaneous
  Country: US (occurrence: US)
  Receive Date: 20171218
  Receipt Date: 20171218
  Transmission Date: 20180321
  Serious: No
  Sender: FDA-Public Use
  Company Number: None

PATIENT
  Age: 5 Year
  Sex: Male
  Weight: 19.35 kg

DRUGS (2)
  1. LIQUID MELATONIN [Concomitant]
  2. DEXMETHYLPHENIDATE [Suspect]
     Active Substance: DEXMETHYLPHENIDATE HYDROCHLORIDE
     Indication: ATTENTION DEFICIT/HYPERACTIVITY DISORDER
     Dosage: ?          QUANTITY:1 TABLET(S);?
     Route: 048
     Dates: start: 20171214, end: 20171218

REACTIONS (4)
  - Aggression [None]
  - Crying [None]
  - Emotional disorder [None]
  - Anger [None]

NARRATIVE: CASE EVENT DATE: 20171216
